FAERS Safety Report 14335548 (Version 1)
Quarter: 2017Q4

REPORT INFORMATION
  Report Type: Spontaneous
  Country: US (occurrence: US)
  Receive Date: 20171229
  Receipt Date: 20171229
  Transmission Date: 20180321
  Serious: Yes (Death, Hospitalization, Other)
  Sender: FDA-Public Use
  Company Number: US-APOTEX-2017AP023575

PATIENT
  Age: 17 Year
  Sex: Female

DRUGS (4)
  1. METHYLPHENIDATE. [Suspect]
     Active Substance: METHYLPHENIDATE
     Indication: PRODUCT USED FOR UNKNOWN INDICATION
     Dosage: UNK  (INGST + INHL)
     Route: 050
  2. FENTANYL. [Suspect]
     Active Substance: FENTANYL
     Dosage: INHALATION
     Route: 045
  3. METHYLPHENIDATE. [Suspect]
     Active Substance: METHYLPHENIDATE
     Dosage: INHALATION
     Route: 045
  4. FENTANYL. [Suspect]
     Active Substance: FENTANYL
     Indication: PRODUCT USED FOR UNKNOWN INDICATION
     Dosage: UNK (INGST + INHL)
     Route: 050

REACTIONS (2)
  - Death [Fatal]
  - Cardio-respiratory arrest [Fatal]
